FAERS Safety Report 25283884 (Version 3)
Quarter: 2025Q3

REPORT INFORMATION
  Report Type: Spontaneous
  Country: US (occurrence: US)
  Receive Date: 20250508
  Receipt Date: 20250702
  Transmission Date: 20251021
  Serious: No
  Sender: PFIZER
  Company Number: US-PFIZER INC-PV202500051574

PATIENT
  Age: 38 Year
  Sex: Female
  Weight: 92.99 kg

DRUGS (2)
  1. ZAVZPRET [Suspect]
     Active Substance: ZAVEGEPANT HYDROCHLORIDE
     Indication: Migraine
     Route: 045
     Dates: start: 2025
  2. GABAPENTIN [Concomitant]
     Active Substance: GABAPENTIN
     Indication: Neuralgia
     Dosage: 1800 MG, 1X/DAY 3 TABLETS AT NIGHT)
     Route: 048

REACTIONS (1)
  - Nasal discomfort [Unknown]

NARRATIVE: CASE EVENT DATE: 20250101
